FAERS Safety Report 4999344-4 (Version None)
Quarter: 2006Q2

REPORT INFORMATION
  Report Type: 
  Country: None (occurrence: None)
  Receive Date: 20060509
  Receipt Date: 20060509
  Transmission Date: 20061013
  Serious: Yes (Hospitalization)
  Sender: FDA-Public Use
  Company Number: None

PATIENT
  Age: 77 Year
  Sex: Female

DRUGS (17)
  1. POTASSIUM CHLORIDE [Suspect]
     Indication: HYPOKALAEMIA
     Dosage: 20 MEQ PO QD
     Route: 048
  2. ASPIRIN [Concomitant]
  3. DILTIAZEM [Concomitant]
  4. CITALOPRAM HYDROBROMIDE [Concomitant]
  5. DOCUSATE [Concomitant]
  6. CARVEDILOL [Concomitant]
  7. DIGOXIN [Concomitant]
  8. PHENYTOIN [Concomitant]
  9. ENALAPRIL MALEATE [Concomitant]
  10. ALENDRONATE SODIUM [Concomitant]
  11. GLYBURIDE [Concomitant]
  12. ISOSORBIDE MONONITRATE [Concomitant]
  13. FUROSEMIDE [Concomitant]
  14. ESCITALOPRAM OXALATE [Concomitant]
  15. METOPROLOL TARTRATE [Concomitant]
  16. MECLIZINE [Concomitant]
  17. NAPROXEN [Concomitant]

REACTIONS (4)
  - BLOOD POTASSIUM INCREASED [None]
  - DIZZINESS [None]
  - DIZZINESS POSTURAL [None]
  - SYNCOPE [None]
